FAERS Safety Report 24564041 (Version 2)
Quarter: 2024Q4

REPORT INFORMATION
  Report Type: Spontaneous
  Country: US (occurrence: US)
  Receive Date: 20241030
  Receipt Date: 20241112
  Transmission Date: 20250115
  Serious: No
  Sender: KYOWA
  Company Number: US-KYOWAKIRIN-2024KK024143

PATIENT

DRUGS (19)
  1. NOURIANZ [Suspect]
     Active Substance: ISTRADEFYLLINE
     Indication: Parkinson^s disease
     Dosage: UNK
     Route: 065
  2. NOURIANZ [Suspect]
     Active Substance: ISTRADEFYLLINE
     Indication: Dyskinesia
     Dosage: 20 MG, BID
     Route: 048
     Dates: start: 20240927
  3. GOCOVRI [Suspect]
     Active Substance: AMANTADINE
     Indication: Product used for unknown indication
     Dosage: 137 MG
     Route: 065
  4. DEXAMETHASON CF [DEXAMETHASONE] [Concomitant]
     Indication: Product used for unknown indication
     Dosage: 0.5 MG
     Route: 065
  5. DOXYCYCLINE HYCLATE [Concomitant]
     Active Substance: DOXYCYCLINE HYCLATE
     Indication: Product used for unknown indication
     Dosage: 100 MG
     Route: 065
  6. DUET DHA [Concomitant]
     Active Substance: .ALPHA.-TOCOPHEROL ACETATE, D-\ASCORBIC ACID\BETA CAROTENE\CALCIUM CARBONATE\CHOLECALCIFEROL\CUPRIC
     Indication: Product used for unknown indication
     Dosage: UNK (PAK COMBO PK)
     Route: 065
  7. FOLLISTIM AQ [Concomitant]
     Active Substance: FOLLITROPIN
     Indication: Product used for unknown indication
     Dosage: 300 IU
     Route: 065
  8. FOLLISTIM AQ [Concomitant]
     Active Substance: FOLLITROPIN
     Dosage: 600 IU
     Route: 065
  9. GANIRELIX ACETATE [Concomitant]
     Active Substance: GANIRELIX ACETATE
     Indication: Product used for unknown indication
     Dosage: 250/0.5
     Route: 065
  10. LEVODOPA [Concomitant]
     Active Substance: LEVODOPA
     Indication: Product used for unknown indication
     Dosage: UNK (POW)
     Route: 065
  11. LIDOCAINE\PRILOCAINE [Concomitant]
     Active Substance: LIDOCAINE\PRILOCAINE
     Indication: Product used for unknown indication
     Dosage: 2.5-2.5%
     Route: 065
  12. LUPRON [Concomitant]
     Active Substance: LEUPROLIDE ACETATE
     Indication: Product used for unknown indication
     Dosage: 2 WEEK
     Route: 065
  13. MEDROL [Concomitant]
     Active Substance: METHYLPREDNISOLONE
     Indication: Product used for unknown indication
     Dosage: 8 MG
     Route: 065
  14. NOVAREL [Concomitant]
     Active Substance: CHORIOGONADOTROPIN ALFA
     Indication: Product used for unknown indication
     Dosage: 10000 IU
     Route: 065
  15. PREGNYL [Concomitant]
     Active Substance: CHORIOGONADOTROPIN ALFA
     Indication: Product used for unknown indication
     Dosage: 10000 IU
     Route: 065
  16. PRIMACARE [Concomitant]
     Active Substance: ALPHA-TOCOPHEROL ACETATE\BIOTIN\CALCIUM ASCORBATE\CALCIUM CARBONATE\CHOLECALCIFEROL\FOLIC ACID\LINOL
     Indication: Product used for unknown indication
     Dosage: ONE
     Route: 065
  17. PROGESTERONE [Concomitant]
     Active Substance: PROGESTERONE
     Indication: Product used for unknown indication
     Dosage: 50 MG/ML
     Route: 065
  18. VIVELLE-DOT [Concomitant]
     Active Substance: ESTRADIOL
     Indication: Product used for unknown indication
     Dosage: 0.1 MG (DIS)
     Route: 065
  19. AMANTADINE [Concomitant]
     Active Substance: AMANTADINE
     Indication: Product used for unknown indication
     Dosage: 100 MG
     Route: 065

REACTIONS (5)
  - Cognitive disorder [Not Recovered/Not Resolved]
  - Anxiety [Not Recovered/Not Resolved]
  - Confusional state [Not Recovered/Not Resolved]
  - Abnormal dreams [Unknown]
  - Sleep talking [Unknown]
